FAERS Safety Report 20263198 (Version 1)
Quarter: 2021Q4

REPORT INFORMATION
  Report Type: Spontaneous
  Country: US (occurrence: US)
  Receive Date: 20211231
  Receipt Date: 20211231
  Transmission Date: 20220303
  Serious: No
  Sender: FDA-Public Use
  Company Number: US-APOTEX-2021AP047083

PATIENT
  Sex: Female

DRUGS (12)
  1. METFORMIN [Suspect]
     Active Substance: METFORMIN HYDROCHLORIDE
     Indication: Hyperglycaemia
     Dosage: 1000 MILLIGRAM, BID
     Route: 065
  2. METFORMIN [Suspect]
     Active Substance: METFORMIN HYDROCHLORIDE
     Dosage: 500 MILLIGRAM, BID (ON DAY 101)
     Route: 065
  3. PIOGLITAZONE [Suspect]
     Active Substance: PIOGLITAZONE
     Indication: Hyperglycaemia
     Dosage: 15 MILLIGRAM, QD
     Route: 065
  4. PIOGLITAZONE [Suspect]
     Active Substance: PIOGLITAZONE
     Dosage: 30 MILLIGRAM, QD
     Route: 065
  5. PIOGLITAZONE [Suspect]
     Active Substance: PIOGLITAZONE
     Dosage: 15 MILLIGRAM, QD (ON DAY 101)
     Route: 065
  6. EMPAGLIFLOZIN [Suspect]
     Active Substance: EMPAGLIFLOZIN
     Indication: Hyperglycaemia
     Dosage: 10 MILLIGRAM (ON DAY 91)
     Route: 065
  7. FULVESTRANT [Concomitant]
     Active Substance: FULVESTRANT
     Indication: Metastases to liver
     Dosage: 300 MILLIGRAM
     Route: 065
     Dates: start: 202006
  8. FULVESTRANT [Concomitant]
     Active Substance: FULVESTRANT
     Indication: Metastases to peritoneum
  9. FULVESTRANT [Concomitant]
     Active Substance: FULVESTRANT
     Indication: Breast cancer
  10. ALPELISIB [Concomitant]
     Active Substance: ALPELISIB
     Indication: Metastases to liver
     Dosage: 300 MILLIGRAM
     Route: 065
     Dates: start: 202006
  11. ALPELISIB [Concomitant]
     Active Substance: ALPELISIB
     Indication: Metastases to peritoneum
     Dosage: 150 MILLIGRAM, QD (ON DAY 21)
     Route: 065
  12. ALPELISIB [Concomitant]
     Active Substance: ALPELISIB
     Indication: Breast cancer
     Dosage: 200 MILLIGRAM, QD (ON DAY 52)
     Route: 065

REACTIONS (4)
  - Anaemia [Unknown]
  - Fatigue [Unknown]
  - Decreased appetite [Unknown]
  - Weight decreased [Unknown]
